FAERS Safety Report 6951084-8 (Version None)
Quarter: 2010Q3

REPORT INFORMATION
  Report Type: 
  Country: None (occurrence: None)
  Receive Date: 20100828
  Receipt Date: 20100305
  Transmission Date: 20110219
  Serious: No
  Sender: FDA-Public Use
  Company Number: US-ABBOTT-10P-163-0631883-00

PATIENT
  Sex: Female
  Weight: 104.42 kg

DRUGS (13)
  1. NIASPAN [Suspect]
     Indication: BLOOD TRIGLYCERIDES INCREASED
     Route: 048
     Dates: start: 20090101
  2. PLAVIX [Concomitant]
     Indication: CEREBROVASCULAR ACCIDENT
     Route: 048
     Dates: start: 20070101
  3. LEVOXYL [Concomitant]
     Indication: HYPOTHYROIDISM
     Route: 048
  4. SIMVASTATIN [Concomitant]
     Indication: BLOOD CHOLESTEROL INCREASED
     Route: 048
  5. CITALOPRAM [Concomitant]
     Indication: ANXIETY
     Route: 048
  6. PHENTERMINE [Concomitant]
     Indication: WEIGHT DECREASED
     Dosage: ALTERNATE WITH PHENDIMETERINE
     Route: 048
  7. PHENDIMETERINE [Concomitant]
     Indication: WEIGHT DECREASED
     Dosage: EVER OTHER DAY ALTERNATING W/PHENTERMINE
     Route: 048
  8. VITAMIN B [Concomitant]
     Indication: VITAMIN SUPPLEMENTATION
     Route: 048
  9. XANAX [Concomitant]
     Indication: MUSCLE RELAXANT THERAPY
     Route: 048
  10. XANAX [Concomitant]
     Indication: INSOMNIA
  11. MULTI-VITAMIN [Concomitant]
     Indication: VITAMIN SUPPLEMENTATION
     Route: 048
  12. LECITHIN [Concomitant]
     Indication: VITAMIN SUPPLEMENTATION
     Route: 048
  13. CALCIUM [Concomitant]
     Indication: MINERAL SUPPLEMENTATION
     Dosage: UNSURE OF STRENGTH
     Route: 048

REACTIONS (2)
  - FLUSHING [None]
  - RASH MACULAR [None]
